FAERS Safety Report 5482265-0 (Version None)
Quarter: 2007Q4

REPORT INFORMATION
  Report Type: 
  Country: None (occurrence: None)
  Receive Date: 20071011
  Receipt Date: 20071002
  Transmission Date: 20080405
  Serious: Yes (Hospitalization)
  Sender: FDA-Public Use
  Company Number: GB-AMGEN-UK218757

PATIENT
  Sex: Female

DRUGS (23)
  1. PANITUMUMAB [Suspect]
     Indication: COLORECTAL CANCER
     Route: 042
     Dates: start: 20070201
  2. AMOXICILLIN + CLAVULANATE POTASSIUM [Concomitant]
     Route: 048
     Dates: start: 20070426, end: 20070503
  3. AMITRIPTYLINE HCL [Concomitant]
     Dates: start: 20070115
  4. IBUPROFEN [Concomitant]
     Route: 048
     Dates: start: 20070101
  5. PARACETAMOL [Concomitant]
     Route: 048
     Dates: start: 20070101
  6. GABAPENTIN [Concomitant]
     Dates: start: 20070129
  7. BUPRENORPHINE HCL [Concomitant]
     Dates: start: 20070101, end: 20070207
  8. MINOCYCLINE HCL [Concomitant]
     Route: 048
     Dates: start: 20070219
  9. LOPERAMIDE HCL [Concomitant]
     Route: 048
     Dates: start: 20070201
  10. MAXOLON [Concomitant]
     Route: 048
     Dates: start: 20070204
  11. GELCLAIR [Concomitant]
     Route: 048
     Dates: start: 20070208
  12. E45 [Concomitant]
     Route: 061
     Dates: start: 20070216, end: 20070217
  13. ATROPINE [Concomitant]
     Route: 042
     Dates: start: 20070219, end: 20070416
  14. ONDANSETRON [Concomitant]
     Route: 042
     Dates: start: 20070201, end: 20070416
  15. DEXAMETHASONE 0.5MG TAB [Concomitant]
     Dates: start: 20070201
  16. ORAMORPH SR [Concomitant]
     Dates: start: 20070312
  17. CHLORHEXIDINE GLUCONATE [Concomitant]
     Route: 048
     Dates: start: 20070320
  18. DIFFLAM [Concomitant]
     Route: 048
     Dates: start: 20070320
  19. CODEINE PHOSPHATE [Concomitant]
     Route: 048
     Dates: start: 20070403
  20. INFUMORPH [Concomitant]
     Route: 048
     Dates: start: 20070401
  21. FLAGYL [Concomitant]
     Route: 042
     Dates: start: 20070330, end: 20070402
  22. NYSTATIN [Concomitant]
     Route: 048
     Dates: start: 20070426
  23. AQUEOUS CREAM [Concomitant]
     Route: 061

REACTIONS (4)
  - DIARRHOEA [None]
  - MALAISE [None]
  - PYREXIA [None]
  - VOMITING [None]
